FAERS Safety Report 7479154-9 (Version None)
Quarter: 2011Q2

REPORT INFORMATION
  Report Type: 
  Country: None (occurrence: None)
  Receive Date: 20110513
  Receipt Date: 20110505
  Transmission Date: 20111010
  Serious: Yes (Hospitalization)
  Sender: FDA-Public Use
  Company Number: FR-BRISTOL-MYERS SQUIBB COMPANY-15727456

PATIENT
  Age: 44 Year
  Sex: Female

DRUGS (4)
  1. PREDNISONE [Concomitant]
  2. ZESTRIL [Concomitant]
  3. PLAQUENIL [Concomitant]
  4. COUMADIN [Suspect]
     Dosage: INTER ON 11APR11,RECHALLENGED WITH DOSE OF 2MG
     Route: 048

REACTIONS (4)
  - POLYP [None]
  - DIARRHOEA [None]
  - RECTAL HAEMORRHAGE [None]
  - ABDOMINAL PAIN [None]
